FAERS Safety Report 4967108-3 (Version None)
Quarter: 2006Q2

REPORT INFORMATION
  Report Type: 
  Country: None (occurrence: None)
  Receive Date: 20060403
  Receipt Date: 20060322
  Transmission Date: 20061013
  Serious: Yes (Hospitalization, Other)
  Sender: FDA-Public Use
  Company Number: 2006025394

PATIENT
  Age: 39 Year
  Sex: Female
  Weight: 68 kg

DRUGS (1)
  1. SYNAREL SPRAY (NAFARELIN ACETATE) [Suspect]
     Indication: MENSTRUAL DISORDER
     Dosage: 2 SPRAYS (1 SPRAY TWICE A DAY), NASAL
     Route: 055
     Dates: start: 20060114, end: 20060203

REACTIONS (5)
  - HYPERHIDROSIS [None]
  - OEDEMA PERIPHERAL [None]
  - PAIN [None]
  - PARAESTHESIA [None]
  - TACHYCARDIA [None]
